FAERS Safety Report 5313135-6 (Version None)
Quarter: 2007Q1

REPORT INFORMATION
  Report Type: 
  Country: None (occurrence: None)
  Receive Date: 20070201
  Receipt Date: 20061113
  Transmission Date: 20070707
  Serious: No
  Sender: FDA-Public Use
  Company Number: VNL_0293_2006

PATIENT
  Sex: Male

DRUGS (1)
  1. APOKYN [Suspect]
     Dosage: DF SC
     Route: 058
     Dates: start: 20061004

REACTIONS (1)
  - NAUSEA [None]
